FAERS Safety Report 21927340 (Version 3)
Quarter: 2023Q2

REPORT INFORMATION
  Report Type: Spontaneous
  Country: JP (occurrence: JP)
  Receive Date: 20230130
  Receipt Date: 20230511
  Transmission Date: 20230721
  Serious: Yes (Death, Life-Threatening, Hospitalization, Other)
  Sender: FDA-Public Use
  Company Number: JP-PFIZER INC-PV202300016519

PATIENT
  Age: 87 Year
  Sex: Male
  Weight: 55.6 kg

DRUGS (1)
  1. VYNDAQEL [Suspect]
     Active Substance: TAFAMIDIS MEGLUMINE
     Dosage: 80 MG, DAILY
     Route: 048
     Dates: start: 20200723, end: 20221117

REACTIONS (3)
  - Septic shock [Fatal]
  - Urinary tract infection [Fatal]
  - Marasmus [Fatal]

NARRATIVE: CASE EVENT DATE: 20221107
